FAERS Safety Report 9479367 (Version 1)
Quarter: 2013Q3

REPORT INFORMATION
  Report Type: Spontaneous
  Country: US (occurrence: US)
  Receive Date: 20130827
  Receipt Date: 20130827
  Transmission Date: 20140515
  Serious: No
  Sender: FDA-Public Use
  Company Number: US-PFIZER INC-2013241967

PATIENT
  Sex: Female

DRUGS (2)
  1. PRISTIQ [Suspect]
     Dosage: 12.5 MG, UNK
  2. PRISTIQ [Suspect]
     Dosage: SPLITTING 12.5MG TABLETS INTO QUARTERS

REACTIONS (3)
  - Wrong technique in drug usage process [Unknown]
  - Drug withdrawal syndrome [Unknown]
  - Diarrhoea [Unknown]
